FAERS Safety Report 4401633-9 (Version None)
Quarter: 2004Q3

REPORT INFORMATION
  Report Type: 
  Country: None (occurrence: None)
  Receive Date: 20040719
  Receipt Date: 20020801
  Transmission Date: 20050211
  Serious: Yes (Hospitalization)
  Sender: FDA-Public Use
  Company Number: AU-ROCHE-318613

PATIENT
  Age: 36 Year
  Sex: Male
  Weight: 102.5 kg

DRUGS (30)
  1. DACLIZUMAB [Suspect]
     Dosage: FOR 4 DOSES
     Route: 042
     Dates: start: 20020512, end: 20020625
  2. DACLIZUMAB [Suspect]
     Route: 042
     Dates: start: 20020708, end: 20020708
  3. MYCOPHENOLATE MOFETIL [Suspect]
     Route: 048
     Dates: start: 20020512, end: 20030523
  4. MYCOPHENOLATE MOFETIL [Suspect]
     Route: 048
  5. CELLCEPT [Suspect]
     Indication: DRUG USE FOR UNKNOWN INDICATION
     Route: 065
     Dates: start: 20040115, end: 20040307
  6. PREDNISONE [Concomitant]
     Dosage: 30 JUL 2003 - 13 FEB 2004, 10MG PER DAY. 14 FEB - 21 MAR 2004 20MG PER DAY. 22 MAR 2004 - 50 MG PER+
     Dates: start: 20030730
  7. NEORAL [Concomitant]
     Dates: start: 20020613
  8. BETALOL [Concomitant]
     Dates: start: 20020702
  9. VALTREX [Concomitant]
     Dates: start: 20020512
  10. BACTRIM [Concomitant]
     Dates: start: 20020512
  11. LIPITOR [Concomitant]
     Dates: start: 19980615
  12. ZANTAC [Concomitant]
     Dates: start: 20020512
  13. FERROGRADUMET [Concomitant]
     Dates: start: 20020601
  14. FOLATE [Concomitant]
     Dates: start: 20020601
  15. ENOXAPARIN SODIUM [Concomitant]
     Dates: start: 20020801
  16. BETALOC [Concomitant]
     Dates: start: 20020210
  17. COVERSYL [Concomitant]
     Dates: start: 20020618
  18. GANCICLOVIR [Concomitant]
     Dates: start: 20021224
  19. WARFARIN SODIUM [Concomitant]
     Dosage: REPORTED: DOSE VARIES.
     Dates: start: 20021004
  20. RENITEC [Concomitant]
     Dates: start: 20030914
  21. VALGANCICLOVIR [Concomitant]
     Dates: start: 20030709
  22. CALCITRIOL [Concomitant]
     Dates: start: 20040215
  23. NILSTAT [Concomitant]
     Dates: start: 20040215
  24. SIROLIMUS [Concomitant]
     Dosage: 3 FEB 2004 - 13 FEB 2004, 4MG PER DAY. 14 FEB 2004 - 5 MAR 2004, 2MG PER DAY. 6 MAR 2004 - 17 MAR 2+
     Dates: start: 20040203, end: 20040317
  25. RIFAMPICIN [Concomitant]
     Dates: start: 20040315
  26. FUSIDIC ACID [Concomitant]
     Dates: start: 20040301, end: 20040311
  27. RANITIDINE [Concomitant]
     Dates: start: 20020512
  28. OMEPRAZOLE [Concomitant]
     Dates: start: 20040325
  29. AMPHOTERICIN B LOZENGES [Concomitant]
     Dates: start: 20020210
  30. ENALAPRIL MALEATE [Concomitant]
     Dates: start: 20030914

REACTIONS (13)
  - ARTHRALGIA [None]
  - CATHETER RELATED COMPLICATION [None]
  - CYTOMEGALOVIRUS INFECTION [None]
  - DEEP VEIN THROMBOSIS [None]
  - DIARRHOEA [None]
  - FOLLICULITIS [None]
  - HEADACHE [None]
  - LETHARGY [None]
  - MOUTH ULCERATION [None]
  - NAUSEA [None]
  - PNEUMOCYSTIS CARINII PNEUMONIA [None]
  - PYREXIA [None]
  - STAPHYLOCOCCAL INFECTION [None]
